FAERS Safety Report 6092191-4 (Version None)
Quarter: 2009Q1

REPORT INFORMATION
  Report Type: 
  Country: None (occurrence: None)
  Receive Date: 20090225
  Receipt Date: 20090217
  Transmission Date: 20090719
  Serious: Yes (Other)
  Sender: FDA-Public Use
  Company Number: PL-AVENTIS-200911626GDDC

PATIENT
  Age: 47 Year
  Sex: Female
  Weight: 55 kg

DRUGS (4)
  1. ARAVA [Suspect]
     Indication: RHEUMATOID ARTHRITIS
     Route: 048
     Dates: start: 20080430, end: 20081114
  2. METYPRED [Concomitant]
     Indication: RHEUMATOID ARTHRITIS
     Route: 048
     Dates: start: 20060101
  3. MELOKSAM [Concomitant]
     Indication: RHEUMATOID ARTHRITIS
     Route: 048
     Dates: start: 20060101
  4. HELICID                            /00661201/ [Concomitant]
     Indication: PROPHYLAXIS
     Route: 048
     Dates: start: 20080101

REACTIONS (6)
  - ALOPECIA [None]
  - HEADACHE [None]
  - MUCOUS MEMBRANE DISORDER [None]
  - NAUSEA [None]
  - SYNCOPE [None]
  - VOMITING [None]
